FAERS Safety Report 8415848-6 (Version None)
Quarter: 2012Q2

REPORT INFORMATION
  Report Type: 
  Country: None (occurrence: None)
  Receive Date: 20120530
  Receipt Date: 20120511
  Transmission Date: 20120825
  Serious: Yes (Hospitalization)
  Sender: FDA-Public Use
  Company Number: JPI-P-021411

PATIENT
  Age: 85 Year
  Sex: Female

DRUGS (1)
  1. XYREM [Suspect]
     Indication: NARCOLEPSY
     Dosage: ORAL
     Route: 048
     Dates: start: 20060314

REACTIONS (6)
  - ASTHENIA [None]
  - NIGHTMARE [None]
  - CRYING [None]
  - MYOCARDIAL INFARCTION [None]
  - STENT MALFUNCTION [None]
  - SOMNAMBULISM [None]
